FAERS Safety Report 21463688 (Version 1)
Quarter: 2022Q4

REPORT INFORMATION
  Report Type: Report from Study
  Country: US (occurrence: US)
  Receive Date: 20221017
  Receipt Date: 20221017
  Transmission Date: 20230113
  Serious: No
  Sender: FDA-Public Use
  Company Number: US-ABBVIE-4162063

PATIENT
  Sex: Female

DRUGS (2)
  1. HUMIRA [Suspect]
     Active Substance: ADALIMUMAB
     Indication: Product used for unknown indication
     Dosage: A 40MG/0.4MCF
     Route: 058
  2. ENBREL [Suspect]
     Active Substance: ETANERCEPT
     Indication: Product used for unknown indication
     Route: 065

REACTIONS (5)
  - Therapeutic product effect decreased [Unknown]
  - Pneumonia [Unknown]
  - Thyroid disorder [Unknown]
  - Drug specific antibody present [Unknown]
  - Drug ineffective [Unknown]
